FAERS Safety Report 8886943 (Version 1)
Quarter: 2012Q4

REPORT INFORMATION
  Report Type: 
  Country: CA (occurrence: CA)
  Receive Date: 20121105
  Receipt Date: 20121105
  Transmission Date: 20130627
  Serious: Yes (Death, Hospitalization, Other)
  Sender: FDA-Public Use
  Company Number: CA-PFIZER INC-2012265794

PATIENT
  Age: 47 Year
  Sex: Male

DRUGS (5)
  1. CELEBREX [Suspect]
     Indication: GOUTY ARTHRITIS
     Dosage: greater or equal to 400mg and also less than 400 mg daily
     Dates: start: 2001
  2. CELEBREX [Suspect]
     Dosage: 200 mg, 2x/day
     Dates: start: 20030328
  3. LOSEC [Concomitant]
     Dosage: 20 mg, UNK
  4. ASA [Concomitant]
     Dosage: 81 mg, 1x/day
  5. ALLOPURINOL [Concomitant]
     Dosage: 300 mg, UNK
     Dates: start: 2003

REACTIONS (1)
  - Congestive cardiomyopathy [Fatal]
